FAERS Safety Report 7781453-8 (Version None)
Quarter: 2011Q3

REPORT INFORMATION
  Report Type: 
  Country: None (occurrence: None)
  Receive Date: 20110927
  Receipt Date: 20110920
  Transmission Date: 20111222
  Serious: Yes (Other)
  Sender: FDA-Public Use
  Company Number: US-ALEXION-A201101383

PATIENT

DRUGS (5)
  1. SOLIRIS [Suspect]
     Dosage: 900 MG, UNK
     Route: 042
     Dates: start: 20110513
  2. FOLIC ACID [Concomitant]
     Dosage: 1 MG, QD
     Route: 048
  3. NEXIUM [Concomitant]
     Dosage: UNK, QD
     Route: 048
  4. VITAMIN B-12 [Concomitant]
     Dosage: 1000 MEQ, QD
     Route: 048
  5. SOLIRIS [Suspect]
     Indication: PAROXYSMAL NOCTURNAL HAEMOGLOBINURIA
     Dosage: 600 MG, UNK
     Route: 042
     Dates: start: 20110415

REACTIONS (5)
  - CONDITION AGGRAVATED [None]
  - NERVOUSNESS [None]
  - PLATELET COUNT ABNORMAL [None]
  - OVARIAN CYST [None]
  - INFLUENZA LIKE ILLNESS [None]
